FAERS Safety Report 11841077 (Version 2)
Quarter: 2016Q1

REPORT INFORMATION
  Report Type: Spontaneous
  Country: US (occurrence: US)
  Receive Date: 20151216
  Receipt Date: 20160225
  Transmission Date: 20160526
  Serious: Yes (Hospitalization, Other)
  Sender: FDA-Public Use
  Company Number: US-ELI_LILLY_AND_COMPANY-US201512001941

PATIENT
  Age: 14 Year
  Sex: Male
  Weight: 57.7 kg

DRUGS (71)
  1. BISACODYL. [Concomitant]
     Active Substance: BISACODYL
     Indication: CONSTIPATION
     Dosage: 2 DF, EACH EVENING
     Route: 048
     Dates: start: 20150903
  2. DOCUSATE [Concomitant]
     Active Substance: DOCUSATE
     Dosage: 100 MG, BID
     Route: 048
     Dates: start: 20151016, end: 20151016
  3. RANITIDINE [Concomitant]
     Active Substance: RANITIDINE\RANITIDINE HYDROCHLORIDE
     Dosage: 150 MG, BID
     Route: 048
     Dates: start: 20151015, end: 20151020
  4. SIMETHICONE (DIMETHICONE) [Concomitant]
     Active Substance: DIMETHICONE
     Indication: ABDOMINAL PAIN
     Dosage: 80 MG, PRN
     Route: 048
     Dates: start: 20151017, end: 20151020
  5. VANCOMYCIN [Concomitant]
     Active Substance: VANCOMYCIN
     Indication: INFECTION PROPHYLAXIS
     Dosage: 500 MG, BID
     Route: 042
     Dates: start: 20151016, end: 20151017
  6. DRONABINOL. [Concomitant]
     Active Substance: DRONABINOL
     Indication: NAUSEA
     Dosage: 2.5 MG, TID
     Route: 048
     Dates: start: 20151028
  7. ZINC                               /00156504/ [Concomitant]
     Indication: SUPPLEMENTATION THERAPY
     Dosage: 50 MG, UNKNOWN
     Route: 065
  8. CHLORHEXIDINE [Concomitant]
     Active Substance: CHLORHEXIDINE
     Indication: INFECTION PROPHYLAXIS
     Dosage: 10 ML, BID
     Route: 045
     Dates: start: 20151119
  9. SCOPOLAMINE                        /00008701/ [Concomitant]
     Active Substance: SCOPOLAMINE
     Indication: NAUSEA
     Dosage: 1.5 MG, BID
     Route: 062
     Dates: start: 20150813
  10. ETOPOSIDE. [Suspect]
     Active Substance: ETOPOSIDE
     Indication: TARGETED CANCER THERAPY
     Dosage: 161.2 MG, QD
     Route: 065
     Dates: start: 20151114, end: 20151118
  11. INOTUZUMAB OZOGAMICIN [Concomitant]
     Active Substance: INOTUZUMAB OZOGAMICIN
     Indication: ACUTE LYMPHOCYTIC LEUKAEMIA RECURRENT
     Dosage: 0.8 MG/M2, CYCLICAL
     Route: 042
     Dates: start: 20151016, end: 20151030
  12. ALLOPURINOL. [Concomitant]
     Active Substance: ALLOPURINOL
     Indication: TUMOUR LYSIS SYNDROME
     Dosage: 200 MG, TID
     Route: 048
     Dates: start: 20151015, end: 20151019
  13. BISACODYL. [Concomitant]
     Active Substance: BISACODYL
     Dosage: 10 MG, QD
     Route: 048
     Dates: start: 20151016, end: 20151016
  14. DIPHENHYDRAMINE                    /00455701/ [Concomitant]
     Active Substance: DIPHENHYDRAMINE
     Indication: PREMEDICATION
     Dosage: 50 MG, SINGLE
     Route: 048
     Dates: start: 20151016, end: 20151016
  15. HYDROMORPHONE [Concomitant]
     Active Substance: HYDROMORPHONE
     Dosage: 1 MG, EVERY 3 HRS
     Route: 042
     Dates: start: 20151112
  16. METHYLPREDNISOLONE. [Concomitant]
     Active Substance: METHYLPREDNISOLONE
     Indication: ANXIETY
     Dosage: 28.8 MG, SINGLE
     Route: 042
     Dates: start: 20151016, end: 20151016
  17. MIRTAZAPINE. [Concomitant]
     Active Substance: MIRTAZAPINE
     Indication: ANXIETY
     Dosage: 7.5 MG, EACH EVENING
     Route: 048
     Dates: start: 20150909
  18. ONDANSETRON [Concomitant]
     Active Substance: ONDANSETRON
     Indication: NAUSEA
     Dosage: 8 MG, TID
     Route: 048
     Dates: start: 20150708
  19. CYPROHEPTADINE. [Concomitant]
     Active Substance: CYPROHEPTADINE
     Indication: ANTIALLERGIC THERAPY
     Dosage: 0.5 DF, TID
     Route: 048
     Dates: start: 20151013
  20. CASPOFUNGIN [Concomitant]
     Active Substance: CASPOFUNGIN
     Indication: ANTIFUNGAL PROPHYLAXIS
     Dosage: 50 MG, QD
     Route: 042
     Dates: start: 20151114
  21. OMEPRAZOLE. [Concomitant]
     Active Substance: OMEPRAZOLE
     Indication: GASTROOESOPHAGEAL REFLUX DISEASE
     Dosage: 20 MG, QD
     Route: 048
     Dates: start: 20150729
  22. OLANZAPINE. [Suspect]
     Active Substance: OLANZAPINE
     Indication: ANXIETY
     Dosage: UNK, UNKNOWN
     Route: 065
     Dates: start: 2014
  23. CYCLOPHOSPHAMIDE. [Suspect]
     Active Substance: CYCLOPHOSPHAMIDE
     Indication: TARGETED CANCER THERAPY
     Dosage: 700 MG, QD
     Route: 065
     Dates: start: 20151114, end: 20151118
  24. FENTANYL. [Concomitant]
     Active Substance: FENTANYL
     Indication: PAIN
     Dosage: 12 UG, UNKNOWN
     Route: 062
     Dates: start: 20151017, end: 20151017
  25. MIRTAZAPINE. [Concomitant]
     Active Substance: MIRTAZAPINE
     Dosage: 3.75 MG, EVERY 48 HOURS
     Route: 048
     Dates: start: 20151114
  26. OXYCODONE [Concomitant]
     Active Substance: OXYCODONE
     Indication: PAIN
     Dosage: 5 MG, EVERY 6 HRS
     Route: 048
     Dates: start: 20151014
  27. OXYCODONE [Concomitant]
     Active Substance: OXYCODONE
     Dosage: 5 MG, EVERY 6 HRS
     Route: 048
     Dates: start: 20151112
  28. CETIRIZINE [Concomitant]
     Active Substance: CETIRIZINE HYDROCHLORIDE
     Dosage: 50 MG, QD
     Route: 048
     Dates: start: 20151114
  29. CHOLECALCIFEROL [Concomitant]
     Active Substance: CHOLECALCIFEROL
     Dosage: 2000 DF, QD
     Route: 048
     Dates: start: 20151114
  30. BIOTIN [Concomitant]
     Active Substance: BIOTIN
     Dosage: 5 MG, EACH EVENING
     Route: 048
     Dates: start: 20151113
  31. LEVOFLOXACIN. [Concomitant]
     Active Substance: LEVOFLOXACIN
     Indication: INFECTION PROPHYLAXIS
     Dosage: 500 MG, QD
     Route: 048
     Dates: start: 20151114
  32. OLANZAPINE. [Suspect]
     Active Substance: OLANZAPINE
     Dosage: 2.5 MG, QD
     Route: 048
     Dates: start: 20151113
  33. HYDROMORPHONE [Concomitant]
     Active Substance: HYDROMORPHONE
     Dosage: 2 MG, PRN
     Route: 048
     Dates: start: 20151023, end: 20151106
  34. HYDROMORPHONE [Concomitant]
     Active Substance: HYDROMORPHONE
     Dosage: 2 MG, EVERY 4 HRS
     Route: 048
     Dates: start: 20151113
  35. LORAZEPAM. [Concomitant]
     Active Substance: LORAZEPAM
     Dosage: 1 MG, EVERY 6 HRS
     Route: 042
     Dates: start: 20151113
  36. SIMETHICONE (DIMETHICONE) [Concomitant]
     Active Substance: DIMETHICONE
     Indication: GASTROOESOPHAGEAL REFLUX DISEASE
     Dosage: 40 MG, QID
     Route: 048
     Dates: start: 20150728
  37. CETIRIZINE [Concomitant]
     Active Substance: CETIRIZINE HYDROCHLORIDE
     Indication: HYPERSENSITIVITY
     Dosage: 0.5 DF, QD
     Route: 048
     Dates: start: 20151007
  38. ZINC                               /00156504/ [Concomitant]
     Dosage: 50 MG, QD
     Route: 048
     Dates: start: 20151114
  39. COTRIMOXAZOLE [Concomitant]
     Active Substance: SULFAMETHOXAZOLE\TRIMETHOPRIM
     Dosage: 160 MG, BID
     Route: 048
     Dates: start: 20151116, end: 20151117
  40. LIDOCAIN                           /00033401/ [Concomitant]
     Active Substance: LIDOCAINE
     Indication: PAIN
     Dosage: 5 ML, SINGLE
     Route: 023
     Dates: start: 20151112, end: 20151112
  41. CEFEPIME [Concomitant]
     Active Substance: CEFEPIME HYDROCHLORIDE
     Indication: INFECTION PROPHYLAXIS
     Dosage: 2000 MG, TID
     Route: 042
     Dates: start: 20151016, end: 20151019
  42. DOCUSATE [Concomitant]
     Active Substance: DOCUSATE
     Dosage: 100 MG, BID
     Route: 048
     Dates: start: 20151113
  43. FENTANYL. [Concomitant]
     Active Substance: FENTANYL
     Dosage: 25 UG, UNKNOWN
     Route: 062
     Dates: start: 20151018, end: 20151018
  44. GENTAMYCIN                         /00047101/ [Concomitant]
     Active Substance: GENTAMICIN
     Indication: INFECTION PROPHYLAXIS
     Dosage: 400 MG, SINGLE
     Route: 042
     Dates: start: 20151016, end: 20151016
  45. HYDROMORPHONE [Concomitant]
     Active Substance: HYDROMORPHONE
     Dosage: 2 MG, PRN
     Route: 048
     Dates: start: 20151018, end: 20151020
  46. ALLOPURINOL. [Concomitant]
     Active Substance: ALLOPURINOL
     Dosage: 3.3 MG/KG, UNKNOWN
     Route: 048
     Dates: start: 20151113
  47. DOCUSATE [Concomitant]
     Active Substance: DOCUSATE
     Indication: CONSTIPATION
     Dosage: 100 MG, BID
     Route: 048
     Dates: start: 20141230
  48. HYDROMORPHONE [Concomitant]
     Active Substance: HYDROMORPHONE
     Indication: PAIN
     Dosage: 1 MG, PRN
     Route: 042
     Dates: start: 20151015, end: 20151018
  49. HYDROMORPHONE [Concomitant]
     Active Substance: HYDROMORPHONE
     Dosage: 2 MG, PRN
     Route: 042
     Dates: start: 20151015, end: 20151018
  50. RANITIDINE [Concomitant]
     Active Substance: RANITIDINE\RANITIDINE HYDROCHLORIDE
     Dosage: 150 MG, BID
     Route: 048
     Dates: start: 20151113
  51. CHOLECALCIFEROL [Concomitant]
     Active Substance: CHOLECALCIFEROL
     Indication: VITAMIN D
     Dosage: 10 MG, QD
     Route: 048
     Dates: start: 20151020
  52. BIOTIN [Concomitant]
     Active Substance: BIOTIN
     Indication: SUPPLEMENTATION THERAPY
     Dosage: UNK, UNKNOWN
     Route: 065
  53. CALCIUM CARBONATE. [Concomitant]
     Active Substance: CALCIUM CARBONATE
     Indication: BLOOD CALCIUM
     Dosage: 400 MG, TID
     Route: 048
     Dates: start: 20151116
  54. OLANZAPINE. [Suspect]
     Active Substance: OLANZAPINE
     Dosage: 2.5 MG, QD
     Route: 048
     Dates: start: 20151016, end: 20151019
  55. BISACODYL. [Concomitant]
     Active Substance: BISACODYL
     Dosage: 10 MG, QD
     Route: 048
     Dates: start: 20151113
  56. FENTANYL. [Concomitant]
     Active Substance: FENTANYL
     Dosage: 25 UG, EVERY 72 HOURS
     Route: 062
     Dates: start: 20151020, end: 20151104
  57. LORAZEPAM. [Concomitant]
     Active Substance: LORAZEPAM
     Dosage: 0.5 MG, BID
     Route: 042
     Dates: start: 20151016, end: 20151020
  58. NALBUPHINE [Concomitant]
     Active Substance: NALBUPHINE
     Indication: PAIN
     Dosage: 5.77 MG, SINGLE
     Route: 042
     Dates: start: 20151015, end: 20151015
  59. ONDANSETRON [Concomitant]
     Active Substance: ONDANSETRON
     Dosage: 20 MG, PRN
     Route: 042
     Dates: start: 20151113
  60. VALACYCLOVIR [Concomitant]
     Active Substance: VALACYCLOVIR HYDROCHLORIDE
     Indication: HERPES SIMPLEX
     Dosage: 1 G, TID
     Route: 048
     Dates: start: 20150804
  61. VALACYCLOVIR [Concomitant]
     Active Substance: VALACYCLOVIR HYDROCHLORIDE
     Dosage: 1000 MG, TID
     Route: 048
     Dates: start: 20151016, end: 20151020
  62. COTRIMOXAZOLE [Concomitant]
     Active Substance: SULFAMETHOXAZOLE\TRIMETHOPRIM
     Indication: INFECTION PROPHYLAXIS
     Dosage: 1 DF, BID
     Route: 048
     Dates: start: 20150217
  63. OMEPRAZOLE. [Concomitant]
     Active Substance: OMEPRAZOLE
     Dosage: 20 MG, QD
     Route: 048
     Dates: start: 20151114
  64. OLANZAPINE. [Suspect]
     Active Substance: OLANZAPINE
     Dosage: 0.5 DF, QD
     Route: 048
     Dates: start: 20150922
  65. TEMSIROLIMUS [Suspect]
     Active Substance: TEMSIROLIMUS
     Indication: TARGETED CANCER THERAPY
     Dosage: 12 MG, TWICE TOTAL
     Route: 065
     Dates: start: 20151115, end: 20151115
  66. LORAZEPAM. [Concomitant]
     Active Substance: LORAZEPAM
     Indication: ANXIETY
     Dosage: 0.5 MG, EVERY 6 HRS
     Route: 048
     Dates: start: 20150728
  67. MIRTAZAPINE. [Concomitant]
     Active Substance: MIRTAZAPINE
     Dosage: 7.5 MG, SINGLE
     Route: 048
     Dates: start: 20151018, end: 20151018
  68. ONDANSETRON [Concomitant]
     Active Substance: ONDANSETRON
     Indication: VOMITING
     Dosage: 8 MG, TID
     Route: 042
     Dates: start: 20151016, end: 20151020
  69. RANITIDINE [Concomitant]
     Active Substance: RANITIDINE\RANITIDINE HYDROCHLORIDE
     Indication: GASTROOESOPHAGEAL REFLUX DISEASE
     Dosage: 150 MG, BID
     Route: 048
     Dates: start: 20150817
  70. IBUPROFEN. [Concomitant]
     Active Substance: IBUPROFEN
     Indication: PAIN
     Dosage: 2 DF, TID
     Route: 048
     Dates: start: 20151014
  71. SCOPOLAMINE                        /00008701/ [Concomitant]
     Active Substance: SCOPOLAMINE
     Indication: VOMITING
     Dosage: 1.5 MG, EVERY 72 HOURS
     Route: 062
     Dates: start: 20151112

REACTIONS (14)
  - Aspartate aminotransferase increased [Recovered/Resolved]
  - Leukaemia recurrent [Unknown]
  - Hypercalcaemia [Recovered/Resolved]
  - Headache [Recovered/Resolved]
  - Hypokalaemia [Recovered/Resolved]
  - Hypotension [Not Recovered/Not Resolved]
  - Urinary retention [Recovered/Resolved]
  - Nausea [Recovered/Resolved]
  - Hyperglycaemia [Recovered/Resolved]
  - Hypoalbuminaemia [Recovered/Resolved]
  - Alanine aminotransferase increased [Recovered/Resolved]
  - Off label use [Unknown]
  - Hyponatraemia [Not Recovered/Not Resolved]
  - Hypocalcaemia [Recovered/Resolved]

NARRATIVE: CASE EVENT DATE: 20151112
